FAERS Safety Report 7832813-8 (Version None)
Quarter: 2011Q4

REPORT INFORMATION
  Report Type: 
  Country: None (occurrence: None)
  Receive Date: 20111024
  Receipt Date: 20111020
  Transmission Date: 20120403
  Serious: No
  Sender: FDA-Public Use
  Company Number: US-BIOGENIDEC-2011BI040236

PATIENT
  Age: 9 Year
  Sex: Male

DRUGS (1)
  1. TYSABRI [Suspect]
     Indication: MULTIPLE SCLEROSIS
     Route: 042
     Dates: start: 20110623

REACTIONS (7)
  - PAIN IN EXTREMITY [None]
  - HYPOAESTHESIA [None]
  - CYSTITIS [None]
  - GASTROENTERITIS VIRAL [None]
  - PARAESTHESIA [None]
  - BACTERIAL TEST POSITIVE [None]
  - PYREXIA [None]
